FAERS Safety Report 6394409-7 (Version None)
Quarter: 2009Q4

REPORT INFORMATION
  Report Type: 
  Country: None (occurrence: None)
  Receive Date: 20091006
  Receipt Date: 20090921
  Transmission Date: 20100525
  Serious: Yes (Hospitalization)
  Sender: FDA-Public Use
  Company Number: 2003119352

PATIENT
  Age: 29 Year
  Sex: Male

DRUGS (1)
  1. BENADRYL [Suspect]
     Indication: SUICIDE ATTEMPT
     Dosage: UNSPECIFIED, ORAL
     Route: 048

REACTIONS (15)
  - AGITATION [None]
  - ASPARTATE AMINOTRANSFERASE INCREASED [None]
  - BLOOD CREATININE INCREASED [None]
  - BLOOD PRESSURE SYSTOLIC INCREASED [None]
  - FEAR [None]
  - GASTROINTESTINAL HYPOMOTILITY [None]
  - INCOHERENT [None]
  - MUCOSAL DRYNESS [None]
  - MYDRIASIS [None]
  - PUPILLARY LIGHT REFLEX TESTS ABNORMAL [None]
  - RHABDOMYOLYSIS [None]
  - STARING [None]
  - SUICIDE ATTEMPT [None]
  - TACHYCARDIA [None]
  - WHITE BLOOD CELL COUNT INCREASED [None]
